FAERS Safety Report 9886232 (Version 2)
Quarter: 2014Q1

REPORT INFORMATION
  Report Type: Spontaneous
  Country: US (occurrence: US)
  Receive Date: 20140210
  Receipt Date: 20140210
  Transmission Date: 20141002
  Serious: No
  Sender: FDA-Public Use
  Company Number: US-PURDUE-USA-2011-0077212

PATIENT
  Age: 59 Year
  Sex: Male

DRUGS (3)
  1. DRONABINOL CAPSULES [Suspect]
     Indication: CROHN^S DISEASE
     Dosage: 5 MG, BID
     Dates: start: 2010
  2. DRONABINOL CAPSULES [Suspect]
     Indication: ANXIETY
     Dosage: 10 MG, TID
     Route: 048
     Dates: start: 2001, end: 20110914
  3. DRONABINOL CAPSULES [Suspect]
     Indication: MUSCLE SPASMS

REACTIONS (4)
  - Weight decreased [Recovering/Resolving]
  - Muscle spasms [Not Recovered/Not Resolved]
  - Decreased appetite [Recovering/Resolving]
  - Drug ineffective [Recovered/Resolved]
